FAERS Safety Report 9564043 (Version 1)
Quarter: 2013Q3

REPORT INFORMATION
  Report Type: Spontaneous
  Country: SE (occurrence: SE)
  Receive Date: 20130928
  Receipt Date: 20130928
  Transmission Date: 20140515
  Serious: Yes (Hospitalization)
  Sender: FDA-Public Use
  Company Number: SE-ROCHE-1282123

PATIENT
  Age: 81 Year
  Sex: Male

DRUGS (4)
  1. LUCENTIS [Suspect]
     Indication: PRODUCT USED FOR UNKNOWN INDICATION
     Dosage: 10MG/ML
     Route: 050
     Dates: start: 20120117
  2. LUCENTIS [Suspect]
     Dosage: 10MG/ML
     Route: 050
     Dates: start: 20130709, end: 20130814
  3. AMLODIPINE MESILATE [Concomitant]
     Route: 065
  4. TROMBYL [Concomitant]
     Route: 065

REACTIONS (1)
  - Cerebral haemorrhage [Recovered/Resolved with Sequelae]
